FAERS Safety Report 24131604 (Version 1)
Quarter: 2024Q3

REPORT INFORMATION
  Report Type: Spontaneous
  Country: US (occurrence: US)
  Receive Date: 20240724
  Receipt Date: 20240724
  Transmission Date: 20241016
  Serious: No
  Sender: PFIZER
  Company Number: US-PFIZER INC-PV202300002273

PATIENT
  Age: 76 Year
  Sex: Female

DRUGS (3)
  1. IBRANCE [Suspect]
     Active Substance: PALBOCICLIB
     Indication: Breast cancer female
     Dosage: 75 MG, CYCLIC (TAKE 1 TABLET EVERY 2 DAYS FOR 21 DAYS THEN 7 DAYS OFF)
     Route: 048
  2. IBRANCE [Suspect]
     Active Substance: PALBOCICLIB
     Dosage: 1 TABLET EVERY OTHER DAYS FOR  2 DAYS FOR 21 DAYS FOLLOWED BY 7 DAYS OFF AND REPEAT
     Route: 048
     Dates: start: 20210318
  3. IBRANCE [Suspect]
     Active Substance: PALBOCICLIB
     Dosage: QD X 21 DAYS FOLLOWED BY 2 DAYS OFF AND REPEAT
     Route: 048

REACTIONS (2)
  - Alopecia [Recovered/Resolved]
  - Off label use [Unknown]
